FAERS Safety Report 6523747-X (Version None)
Quarter: 2009Q4

REPORT INFORMATION
  Report Type: 
  Country: None (occurrence: None)
  Receive Date: 20091230
  Receipt Date: 20091230
  Transmission Date: 20100525
  Serious: Yes (Hospitalization)
  Sender: FDA-Public Use
  Company Number: None

PATIENT
  Age: 66 Year
  Sex: Male

DRUGS (6)
  1. RAMIPRIL [Suspect]
     Indication: VENTRICULAR TACHYCARDIA
  2. AMIODARONE HCL [Suspect]
     Indication: VENTRICULAR TACHYCARDIA
  3. BISOPROLOL [Suspect]
     Indication: VENTRICULAR TACHYCARDIA
  4. MAGNESIUM [Suspect]
     Indication: VENTRICULAR TACHYCARDIA
     Dosage: INTRAVENEOUS
     Route: 042
  5. MEXILETINE HYDROCHLORIDE [Suspect]
     Indication: VENTRICULAR TACHYCARDIA
     Dosage: , 1 D
  6. OMACOR (OMEGA-3 FATTY ACID SUPPLEMENTATION [Concomitant]

REACTIONS (3)
  - CONGESTIVE CARDIOMYOPATHY [None]
  - HYPOTENSION [None]
  - VENTRICULAR TACHYCARDIA [None]
